FAERS Safety Report 7570654-X (Version None)
Quarter: 2011Q2

REPORT INFORMATION
  Report Type: 
  Country: None (occurrence: None)
  Receive Date: 20110624
  Receipt Date: 20110425
  Transmission Date: 20111010
  Serious: No
  Sender: FDA-Public Use
  Company Number: US-ALLERGAN-1105735US

PATIENT
  Age: 64 Year
  Sex: Female

DRUGS (4)
  1. EYELINER [Concomitant]
  2. LATISSE [Suspect]
     Indication: MADAROSIS
     Dosage: 1 GTT, QOD
     Route: 061
  3. MASCARA [Concomitant]
  4. LATISSE [Suspect]
     Dosage: 1 GTT, QOD
     Route: 061

REACTIONS (3)
  - WRONG TECHNIQUE IN DRUG USAGE PROCESS [None]
  - EYELIDS PRURITUS [None]
  - ERYTHEMA OF EYELID [None]
